FAERS Safety Report 4294463-2 (Version None)
Quarter: 2004Q1

REPORT INFORMATION
  Report Type: 
  Country: None (occurrence: None)
  Receive Date: 20040211
  Receipt Date: 20040129
  Transmission Date: 20041129
  Serious: Yes (Hospitalization)
  Sender: FDA-Public Use
  Company Number: 2004007667

PATIENT
  Age: 60 Year
  Sex: Male

DRUGS (1)
  1. TAHOR (ATORVASTATIN) [Suspect]
     Indication: CAROTID ARTERY STENOSIS

REACTIONS (1)
  - MALNUTRITION [None]
